FAERS Safety Report 8365095-1 (Version None)
Quarter: 2012Q1

REPORT INFORMATION
  Report Type: 
  Country: None (occurrence: None)
  Receive Date: 20120323
  Receipt Date: 20111219
  Transmission Date: 20120608
  Serious: Yes (Hospitalization)
  Sender: FDA-Public Use
  Company Number: 163-21880-11112368

PATIENT
  Age: 85 Year
  Sex: Male

DRUGS (2)
  1. REVLIMID [Suspect]
     Indication: MULTIPLE MYELOMA
     Dosage: 15 MG, ON DAYS 1-21, PO
     Route: 048
     Dates: start: 20091118
  2. ASPIRIN [Concomitant]

REACTIONS (1)
  - ISCHAEMIC STROKE [None]
